FAERS Safety Report 6108930-X (Version None)
Quarter: 2009Q1

REPORT INFORMATION
  Report Type: 
  Country: None (occurrence: None)
  Receive Date: 20090306
  Receipt Date: 20090222
  Transmission Date: 20090719
  Serious: Yes (Other)
  Sender: FDA-Public Use
  Company Number: 1000003107

PATIENT
  Sex: Female

DRUGS (5)
  1. FOSFOMYCIN       (FOSFOMYCIN TROMETAMOL) (GRANULATE) [Suspect]
     Indication: ASTHENIA
     Dosage: 3 GM (3 GM, ONCE), ORAL
     Route: 048
  2. FOSFOMYCIN       (FOSFOMYCIN TROMETAMOL) (GRANULATE) [Suspect]
     Indication: DYSURIA
     Dosage: 3 GM (3 GM, ONCE), ORAL
     Route: 048
  3. CIPRODAR       (TABLETS)    CIPROFLOXACIN [Suspect]
     Indication: DYSURIA
     Dosage: 500 MG (250 MG, 2 IN 1 D), ORAL
     Route: 048
  4. ASCORBIC ACID [Concomitant]
  5. ROYAL JELLY [Concomitant]

REACTIONS (1)
  - THROMBOCYTOPENIA [None]
